FAERS Safety Report 18909009 (Version 1)
Quarter: 2021Q1

REPORT INFORMATION
  Report Type: Spontaneous
  Country: US (occurrence: US)
  Receive Date: 20210217
  Receipt Date: 20210217
  Transmission Date: 20210420
  Serious: Yes (Other)
  Sender: FDA-Public Use
  Company Number: None

PATIENT
  Age: 72 Year
  Sex: Female
  Weight: 71.55 kg

DRUGS (3)
  1. VITAMIN D3 [Concomitant]
     Active Substance: CHOLECALCIFEROL
  2. XANAX [Concomitant]
     Active Substance: ALPRAZOLAM
  3. LINZESS [Suspect]
     Active Substance: LINACLOTIDE
     Indication: CONSTIPATION
     Dosage: ?          QUANTITY:1 CAPSULE(S);?
     Route: 048
     Dates: start: 20210215, end: 20210216

REACTIONS (5)
  - Abdominal distension [None]
  - Nausea [None]
  - Diarrhoea [None]
  - Eructation [None]
  - Feeling abnormal [None]

NARRATIVE: CASE EVENT DATE: 20210215
